FAERS Safety Report 11822629 (Version 2)
Quarter: 2017Q3

REPORT INFORMATION
  Report Type: Spontaneous
  Country: US (occurrence: US)
  Receive Date: 20151210
  Receipt Date: 20170725
  Transmission Date: 20171127
  Serious: No
  Sender: FDA-Public Use
  Company Number: US-JNJFOC-20150603668

PATIENT
  Age: 76 Year
  Sex: Female

DRUGS (4)
  1. IMBRUVICA [Suspect]
     Active Substance: IBRUTINIB
     Indication: ACUTE LYMPHOCYTIC LEUKAEMIA
     Route: 048
     Dates: start: 20150311
  2. IMBRUVICA [Suspect]
     Active Substance: IBRUTINIB
     Indication: CHRONIC LYMPHOCYTIC LEUKAEMIA
     Route: 048
     Dates: start: 20150312, end: 201706
  3. IMBRUVICA [Suspect]
     Active Substance: IBRUTINIB
     Indication: ACUTE LYMPHOCYTIC LEUKAEMIA
     Route: 048
     Dates: start: 20150312, end: 201706
  4. IMBRUVICA [Suspect]
     Active Substance: IBRUTINIB
     Indication: CHRONIC LYMPHOCYTIC LEUKAEMIA
     Route: 048
     Dates: start: 20150311

REACTIONS (11)
  - Product use in unapproved indication [Unknown]
  - Pain in extremity [Unknown]
  - Oedema peripheral [Not Recovered/Not Resolved]
  - Weight fluctuation [Not Recovered/Not Resolved]
  - Chromaturia [Not Recovered/Not Resolved]
  - Peripheral coldness [Unknown]
  - Eye infection bacterial [Unknown]
  - Urine odour abnormal [Unknown]
  - Off label use [Unknown]
  - Skin discolouration [Unknown]
  - Contusion [Unknown]

NARRATIVE: CASE EVENT DATE: 2015
